FAERS Safety Report 26133698 (Version 1)
Quarter: 2025Q4

REPORT INFORMATION
  Report Type: Spontaneous
  Country: EU (occurrence: EU)
  Receive Date: 20251209
  Receipt Date: 20251209
  Transmission Date: 20260118
  Serious: Yes (Death, Other)
  Sender: MERCK SHARP & DOHME LLC
  Company Number: EU-009507513-2357732

PATIENT
  Sex: Male

DRUGS (1)
  1. KEYTRUDA [Suspect]
     Active Substance: PEMBROLIZUMAB
     Indication: Non-small cell lung cancer
     Dosage: TIME INTERVAL: CYCLICAL: 4 CYCLES AS PERIOPERATIVE; THEN AS ADJUVANT TREATMENT
     Route: 065

REACTIONS (1)
  - Adverse reaction [Fatal]
